FAERS Safety Report 6242018-2 (Version None)
Quarter: 2009Q2

REPORT INFORMATION
  Report Type: 
  Country: None (occurrence: None)
  Receive Date: 20090622
  Receipt Date: 20090528
  Transmission Date: 20091009
  Serious: No
  Sender: FDA-Public Use
  Company Number: 2009-197865-NL

PATIENT
  Age: 49 Year
  Sex: Male

DRUGS (1)
  1. MIRTAZAPINE [Suspect]
     Indication: DEPRESSION
     Dosage: 30 MG,
     Dates: start: 20071201

REACTIONS (3)
  - DYSPNOEA [None]
  - PRODUCT COUNTERFEIT [None]
  - TACHYCARDIA [None]
